FAERS Safety Report 18530071 (Version 1)
Quarter: 2020Q4

REPORT INFORMATION
  Report Type: Spontaneous
  Country: US (occurrence: US)
  Receive Date: 20201120
  Receipt Date: 20201120
  Transmission Date: 20210114
  Serious: No
  Sender: FDA-Public Use
  Company Number: US-NOVOPROD-708313

PATIENT
  Age: 67 Year
  Sex: Male

DRUGS (1)
  1. NOVOLOG [Suspect]
     Active Substance: INSULIN ASPART
     Indication: TYPE 2 DIABETES MELLITUS
     Dosage: 6 UNITS WITH EACH MEAL PLUS 2 CORRECTION UNITS FOR EVERY 50 POINTS OVER 150 BLOOD SUGAR READING
     Route: 058

REACTIONS (6)
  - Hyperlipidaemia [Unknown]
  - Palpitations [Recovered/Resolved]
  - Hypertension [Unknown]
  - Product quality issue [Unknown]
  - Headache [Recovered/Resolved]
  - Nausea [Recovered/Resolved]

NARRATIVE: CASE EVENT DATE: 201912
